FAERS Safety Report 22368006 (Version 1)
Quarter: 2023Q2

REPORT INFORMATION
  Report Type: Report from Study
  Country: BW (occurrence: BW)
  Receive Date: 20230525
  Receipt Date: 20230525
  Transmission Date: 20230722
  Serious: Yes (Other)
  Sender: FDA-Public Use
  Company Number: BW-ViiV Healthcare Limited-BW2020GSK262943

PATIENT

DRUGS (1)
  1. DOLUTEGRAVIR [Suspect]
     Active Substance: DOLUTEGRAVIR
     Indication: HIV infection
     Dosage: UNK
     Route: 064

REACTIONS (3)
  - Vertical infection transmission [Unknown]
  - HIV infection [Unknown]
  - Foetal exposure during pregnancy [Unknown]
